FAERS Safety Report 7682634-4 (Version None)
Quarter: 2011Q3

REPORT INFORMATION
  Report Type: 
  Country: None (occurrence: None)
  Receive Date: 20110815
  Receipt Date: 20110802
  Transmission Date: 20111222
  Serious: Yes (Hospitalization)
  Sender: FDA-Public Use
  Company Number: PHHY2011FR70243

PATIENT
  Sex: Male

DRUGS (8)
  1. ZYLORIC ^FRESENIUS^ [Concomitant]
     Dosage: 300 MG/DAY
  2. AMLODIPINE BESYLATE [Concomitant]
     Dosage: 10 MG/DAY
  3. RASILEZ [Suspect]
     Dosage: 300 MG/DAY
     Dates: end: 20110620
  4. PREVISCAN [Concomitant]
     Dosage: 5 MG/DAY
  5. LANTUS [Concomitant]
     Dosage: 40 U/DAY
  6. ATORVASTATIN CALCIUM [Concomitant]
     Dosage: 40 MG/DAY
  7. HUMALOG [Concomitant]
     Dosage: 14 U, BID
  8. BISOPROLOL FUMARATE [Concomitant]
     Dosage: 10 MG/DAY

REACTIONS (4)
  - DYSPNOEA [None]
  - HYPERKALAEMIA [None]
  - OEDEMA PERIPHERAL [None]
  - RENAL FAILURE ACUTE [None]
